FAERS Safety Report 8943190 (Version 4)
Quarter: 2013Q2

REPORT INFORMATION
  Report Type: Spontaneous
  Country: US (occurrence: US)
  Receive Date: 20121204
  Receipt Date: 20130402
  Transmission Date: 20140414
  Serious: Yes (Disabling, Other)
  Sender: FDA-Public Use
  Company Number: US-SANOFI-AVENTIS-2012SA075496

PATIENT
  Age: 52 Year
  Sex: Male
  Weight: 65.45 kg

DRUGS (8)
  1. LANTUS SOLOSTAR [Suspect]
     Indication: TYPE 2 DIABETES MELLITUS
     Dosage: STARTED LANTUS SOLOSTAR ON 07-AUG-2012 OR 08-AUG-2012 DOSE:15 UNIT(S)
     Route: 058
     Dates: start: 20120807
  2. LANTUS SOLOSTAR [Suspect]
     Indication: TYPE 2 DIABETES MELLITUS
     Dosage: DOSE:15 UNIT(S)
     Route: 058
     Dates: start: 2012, end: 20120918
  3. SOLOSTAR [Suspect]
     Indication: TYPE 2 DIABETES MELLITUS
     Dosage: STARTED LANTUS SOLOSTAR ON 07-AUG-2012 OR 08-AUG-2012
     Dates: start: 20120807
  4. SOLOSTAR [Suspect]
     Indication: TYPE 2 DIABETES MELLITUS
     Dates: start: 2012, end: 20120918
  5. METFORMIN [Suspect]
     Indication: DIABETES MELLITUS
     Route: 065
     Dates: end: 2012
  6. METFORMIN [Suspect]
     Indication: DIABETES MELLITUS
     Dosage: TWICE DAILY
     Route: 065
     Dates: start: 2012
  7. SIMVASTATIN [Suspect]
     Indication: BLOOD CHOLESTEROL ABNORMAL
     Route: 065
     Dates: start: 20120705
  8. LISINOPRIL [Concomitant]
     Indication: HYPERTENSION
     Dates: start: 20120705

REACTIONS (14)
  - Pain in extremity [Not Recovered/Not Resolved]
  - Pain in extremity [Not Recovered/Not Resolved]
  - Gait disturbance [Not Recovered/Not Resolved]
  - Disability [Not Recovered/Not Resolved]
  - Insomnia [Not Recovered/Not Resolved]
  - Depression [Not Recovered/Not Resolved]
  - Weight decreased [Unknown]
  - Aphagia [Unknown]
  - Gastric infection [Not Recovered/Not Resolved]
  - Malnutrition [Not Recovered/Not Resolved]
  - Upper respiratory tract infection [Recovering/Resolving]
  - Local swelling [Unknown]
  - Sinusitis [Not Recovered/Not Resolved]
  - Infection [Unknown]
